FAERS Safety Report 20895402 (Version 1)
Quarter: 2022Q2

REPORT INFORMATION
  Report Type: Spontaneous
  Country: RU (occurrence: None)
  Receive Date: 20220531
  Receipt Date: 20220531
  Transmission Date: 20220721
  Serious: Yes (Other)
  Sender: FDA-Public Use
  Company Number: RU-ROCHE-3104573

PATIENT
  Age: 42 Year
  Sex: Female

DRUGS (5)
  1. RITUXIMAB [Suspect]
     Active Substance: RITUXIMAB
     Indication: Follicular lymphoma
     Dosage: FIRST  LINE THERAPY
     Route: 065
     Dates: start: 202004, end: 202010
  2. OBINUTUZUMAB [Suspect]
     Active Substance: OBINUTUZUMAB
     Indication: Follicular lymphoma
     Dosage: HERPES ZOSTER WAS OBSERVED DURING OBINUTUZUMAB MAINTENANCE THERAPY
     Route: 065
  3. CYCLOPHOSPHAMIDE\DOXORUBICIN\PREDNISONE\VINCRISTINE [Suspect]
     Active Substance: CYCLOPHOSPHAMIDE\DOXORUBICIN\PREDNISONE\VINCRISTINE
     Indication: Follicular lymphoma
     Dosage: FIRST  LINE THERAPY
     Route: 065
     Dates: start: 202004, end: 202010
  4. GEMCITABINE [Suspect]
     Active Substance: GEMCITABINE
     Indication: Follicular lymphoma
     Dosage: SECOND LINE OF THERAPY (6 G-B)
     Route: 065
     Dates: start: 202103, end: 202111
  5. BENDAMUSTINE [Suspect]
     Active Substance: BENDAMUSTINE
     Indication: Follicular lymphoma
     Dosage: SECOND LINE OF THERAPY (6 G-B)
     Route: 065
     Dates: start: 202103, end: 202111

REACTIONS (4)
  - Pneumonia [Unknown]
  - Metastases to lymph nodes [Unknown]
  - Pneumonia bacterial [Unknown]
  - Herpes zoster [Unknown]

NARRATIVE: CASE EVENT DATE: 20210201
